FAERS Safety Report 24041923 (Version 1)
Quarter: 2024Q3

REPORT INFORMATION
  Report Type: Spontaneous
  Country: US (occurrence: US)
  Receive Date: 20240702
  Receipt Date: 20240702
  Transmission Date: 20241016
  Serious: Yes (Other)
  Sender: FRESENIUS KABI
  Company Number: US-FreseniusKabi-FK202410183

PATIENT
  Age: 5 Month
  Sex: Female

DRUGS (23)
  1. CISPLATIN [Suspect]
     Active Substance: CISPLATIN
     Indication: Brain neoplasm
     Dosage: DAY 1 OF WEEK 1
     Route: 042
     Dates: start: 2016
  2. CISPLATIN [Suspect]
     Active Substance: CISPLATIN
     Dosage: DAY 1 OF WEEK 4
     Route: 042
     Dates: start: 2016
  3. CISPLATIN [Suspect]
     Active Substance: CISPLATIN
     Dosage: DAY 1 OF WEEK 7
     Route: 042
     Dates: start: 2016
  4. CISPLATIN [Suspect]
     Active Substance: CISPLATIN
     Dosage: DAY 1 OF WEEK 10
     Route: 042
     Dates: start: 2016
  5. DOXORUBICIN [Suspect]
     Active Substance: DOXORUBICIN
     Indication: Brain neoplasm
     Dosage: DAY 2 AND 3 OF WEEK 1
     Route: 042
     Dates: start: 2016
  6. DOXORUBICIN [Suspect]
     Active Substance: DOXORUBICIN
     Dosage: DAY 2 AND 3 OF WEEK 4
     Route: 042
     Dates: start: 2016
  7. DOXORUBICIN [Suspect]
     Active Substance: DOXORUBICIN
     Dosage: DAY 2 AND 3 OF WEEK 13
     Route: 042
     Dates: start: 2016
  8. ETOPOSIDE [Suspect]
     Active Substance: ETOPOSIDE
     Indication: Brain neoplasm
     Dosage: DAY 1, 2 AND 3 OF WEEK 4
     Route: 042
     Dates: start: 2016
  9. ETOPOSIDE [Suspect]
     Active Substance: ETOPOSIDE
     Dosage: DAY 1, 2 AND 3 OF WEEK 7
     Route: 042
     Dates: start: 2016
  10. ETOPOSIDE [Suspect]
     Active Substance: ETOPOSIDE
     Dosage: DAY 1, 2 AND 3 OF WEEK 10
     Route: 042
     Dates: start: 2016
  11. TOPOTECAN [Suspect]
     Active Substance: TOPOTECAN HYDROCHLORIDE
     Indication: Brain neoplasm
     Dosage: DAY 1 WEEK 1
     Route: 037
     Dates: start: 2016
  12. TOPOTECAN [Suspect]
     Active Substance: TOPOTECAN HYDROCHLORIDE
     Dosage: DAY 1 WEEK 2
     Route: 037
     Dates: start: 2016
  13. TOPOTECAN [Suspect]
     Active Substance: TOPOTECAN HYDROCHLORIDE
     Dosage: DAY 1 WEEK 4
     Route: 037
     Dates: start: 2016
  14. TOPOTECAN [Suspect]
     Active Substance: TOPOTECAN HYDROCHLORIDE
     Dosage: DAY 1 WEEK 7
     Route: 037
     Dates: start: 2016
  15. TOPOTECAN [Suspect]
     Active Substance: TOPOTECAN HYDROCHLORIDE
     Dosage: DAY 1 WEEK 13
     Route: 037
     Dates: start: 2016
  16. VINCRISTINE [Suspect]
     Active Substance: VINCRISTINE
     Indication: Brain neoplasm
     Dosage: DAY 1 WEEK 1-13
     Route: 042
     Dates: start: 2016
  17. VINCRISTINE [Suspect]
     Active Substance: VINCRISTINE
     Dosage: DAY 1 WEEK 16
     Route: 042
     Dates: start: 2016
  18. CYCLOPHOSPHAMIDE [Suspect]
     Active Substance: CYCLOPHOSPHAMIDE
     Indication: Brain neoplasm
     Dosage: DAY 2,3 AND 4 WEEK 13
     Route: 042
     Dates: start: 2016
  19. CYCLOPHOSPHAMIDE [Suspect]
     Active Substance: CYCLOPHOSPHAMIDE
     Dosage: DAY 2,3 AND 4 WEEK 16
     Route: 042
     Dates: start: 2016
  20. CYCLOPHOSPHAMIDE [Suspect]
     Active Substance: CYCLOPHOSPHAMIDE
     Dosage: DAY 2 OF WEEK 7
     Route: 042
     Dates: start: 2016
  21. CYCLOPHOSPHAMIDE [Suspect]
     Active Substance: CYCLOPHOSPHAMIDE
     Dosage: DAY 2 OF WEEK 10
     Route: 042
     Dates: start: 2016
  22. CYCLOPHOSPHAMIDE [Suspect]
     Active Substance: CYCLOPHOSPHAMIDE
     Dosage: DAY 2,3 AND 4 WEEK 1
     Route: 042
     Dates: start: 2016
  23. ACTINOMYCIN D [Suspect]
     Active Substance: DACTINOMYCIN
     Indication: Brain neoplasm
     Dosage: ON DAYS 1, 2, 3, 4, AND 5 OF WEEK 16
     Route: 042
     Dates: start: 2016

REACTIONS (2)
  - Venoocclusive liver disease [Recovering/Resolving]
  - Ototoxicity [Recovered/Resolved with Sequelae]
